FAERS Safety Report 18459545 (Version 1)
Quarter: 2020Q4

REPORT INFORMATION
  Report Type: Spontaneous
  Country: FR (occurrence: FR)
  Receive Date: 20201103
  Receipt Date: 20201103
  Transmission Date: 20210114
  Serious: Yes (Death)
  Sender: FDA-Public Use
  Company Number: FR-JNJFOC-20201043877

PATIENT
  Age: 62 Year
  Sex: Female

DRUGS (9)
  1. TRANSIPEG                          /00754501/ [Concomitant]
     Active Substance: POLYETHYLENE GLYCOL 3350
  2. RISPERDAL [Suspect]
     Active Substance: RISPERIDONE
     Indication: DEPRESSION
     Route: 048
     Dates: start: 20200903, end: 20201001
  3. TERCIAN [Suspect]
     Active Substance: CYAMEMAZINE
     Indication: DEPRESSION
     Route: 048
     Dates: end: 20201001
  4. GAVISCON                           /00237601/ [Concomitant]
     Active Substance: ALUMINUM HYDROXIDE\MAGNESIUM CARBONATE
  5. ZONEGRAN [Concomitant]
     Active Substance: ZONISAMIDE
  6. ESOMEPRAZOLE. [Concomitant]
     Active Substance: ESOMEPRAZOLE MAGNESIUM
  7. ZYMAD [Concomitant]
     Active Substance: CHOLECALCIFEROL
  8. CRESTOR [Concomitant]
     Active Substance: ROSUVASTATIN CALCIUM
  9. URBANYL [Concomitant]
     Active Substance: CLOBAZAM

REACTIONS (4)
  - Neuroleptic malignant syndrome [Fatal]
  - Multiple organ dysfunction syndrome [Fatal]
  - Off label use [Unknown]
  - Product use in unapproved indication [Unknown]

NARRATIVE: CASE EVENT DATE: 20201001
